FAERS Safety Report 12664604 (Version 1)
Quarter: 2016Q3

REPORT INFORMATION
  Report Type: Report from Study
  Country: CO (occurrence: CO)
  Receive Date: 20160818
  Receipt Date: 20160818
  Transmission Date: 20161109
  Serious: Yes (Other)
  Sender: FDA-Public Use
  Company Number: CO-AMGEN-COLSL2016105704

PATIENT
  Age: 47 Year
  Sex: Male
  Weight: 72 kg

DRUGS (1)
  1. ARANESP [Suspect]
     Active Substance: DARBEPOETIN ALFA
     Indication: NEPHROGENIC ANAEMIA
     Dosage: 50 MUG, QWK
     Route: 058
     Dates: start: 20160630

REACTIONS (2)
  - Mass excision [Recovered/Resolved]
  - Haemorrhage [Recovered/Resolved]

NARRATIVE: CASE EVENT DATE: 20160801
